FAERS Safety Report 6408111-6 (Version None)
Quarter: 2009Q4

REPORT INFORMATION
  Report Type: 
  Country: None (occurrence: None)
  Receive Date: 20091021
  Receipt Date: 20091014
  Transmission Date: 20100525
  Serious: Yes (Hospitalization)
  Sender: FDA-Public Use
  Company Number: IN-JNJFOC-20091005538

PATIENT
  Age: 34 Year
  Sex: Male

DRUGS (2)
  1. REOPRO [Suspect]
  2. REOPRO [Suspect]
     Indication: CORONARY ANGIOPLASTY

REACTIONS (1)
  - THROMBOSIS IN DEVICE [None]
